FAERS Safety Report 6787698-8 (Version None)
Quarter: 2010Q2

REPORT INFORMATION
  Report Type: 
  Country: None (occurrence: None)
  Receive Date: 20100623
  Receipt Date: 20070727
  Transmission Date: 20101027
  Serious: No
  Sender: FDA-Public Use
  Company Number: US-PFIZER INC-2007062575

PATIENT
  Sex: Male
  Weight: 82 kg

DRUGS (2)
  1. SUTENT [Suspect]
     Indication: RENAL CANCER
     Dates: start: 20070614
  2. PREVACID [Concomitant]

REACTIONS (5)
  - DECREASED APPETITE [None]
  - NAUSEA [None]
  - NIGHT SWEATS [None]
  - SOMNOLENCE [None]
  - WEIGHT DECREASED [None]
